FAERS Safety Report 8549597-0 (Version None)
Quarter: 2012Q3

REPORT INFORMATION
  Report Type: 
  Country: None (occurrence: None)
  Receive Date: 20120730
  Receipt Date: 20120725
  Transmission Date: 20120928
  Serious: No
  Sender: FDA-Public Use
  Company Number: US-BAYER-2012-075176

PATIENT
  Age: 64 Year
  Sex: Female

DRUGS (5)
  1. CYMBALTA [Concomitant]
     Dosage: 30 MG, UNK
     Route: 048
  2. ENABLEX [Concomitant]
     Dosage: 7.5 MG, UNK
     Route: 048
  3. MULTI-VITAMINS [Concomitant]
     Dosage: UNK
     Route: 048
  4. VITAMIN B-12 [Concomitant]
     Dosage: 1000  CR UNK
  5. BETASERON [Suspect]
     Dosage: 0.3 MG, QOD
     Route: 058

REACTIONS (2)
  - ERYTHEMA [None]
  - RASH GENERALISED [None]
